FAERS Safety Report 18526446 (Version 2)
Quarter: 2020Q4

REPORT INFORMATION
  Report Type: Report from Study
  Country: US (occurrence: US)
  Receive Date: 20201120
  Receipt Date: 20201211
  Transmission Date: 20210114
  Serious: Yes (Hospitalization)
  Sender: FDA-Public Use
  Company Number: US-JNJFOC-20201131362

PATIENT
  Sex: Female
  Weight: 23.8 kg

DRUGS (38)
  1. INFLIXIMAB, RECOMBINANT [Suspect]
     Active Substance: INFLIXIMAB
     Indication: COLITIS ULCERATIVE
     Route: 042
     Dates: start: 201612, end: 20190613
  2. FENTANYL. [Concomitant]
     Active Substance: FENTANYL
  3. BUPIVACAINE. [Concomitant]
     Active Substance: BUPIVACAINE
  4. SUGAMMADEX [Concomitant]
     Active Substance: SUGAMMADEX
  5. ROCURONIUM [Concomitant]
     Active Substance: ROCURONIUM BROMIDE
  6. TURMERIC [CURCUMA LONGA RHIZOME] [Concomitant]
     Active Substance: HERBALS\TURMERIC
  7. DOXYCYCLINE HYCLATE. [Concomitant]
     Active Substance: DOXYCYCLINE HYCLATE
  8. ACETAMINOPHEN. [Concomitant]
     Active Substance: ACETAMINOPHEN
  9. POLYETHYLENE GLYCOL COMPOUND [Concomitant]
  10. ONDANSETRON [Concomitant]
     Active Substance: ONDANSETRON
  11. HYDROCORTISONE. [Concomitant]
     Active Substance: HYDROCORTISONE
  12. OXYCODONE [Concomitant]
     Active Substance: OXYCODONE
  13. IBUPROFEN. [Concomitant]
     Active Substance: IBUPROFEN
  14. LOPERAMIDE [Concomitant]
     Active Substance: LOPERAMIDE
  15. SODIUM CHLORIDE. [Concomitant]
     Active Substance: SODIUM CHLORIDE
  16. KETOROLAC [Concomitant]
     Active Substance: KETOROLAC TROMETHAMINE
  17. PHENYLEPHRINE [Concomitant]
     Active Substance: PHENYLEPHRINE HYDROCHLORIDE
  18. 5-ASA [Concomitant]
     Active Substance: MESALAMINE
     Route: 048
  19. GLYCOLAX [Concomitant]
     Active Substance: POLYETHYLENE GLYCOL 3350
  20. METHYLPREDNISOLONE. [Concomitant]
     Active Substance: METHYLPREDNISOLONE
  21. MORPHINE [Concomitant]
     Active Substance: MORPHINE
  22. BUDESONIDE. [Concomitant]
     Active Substance: BUDESONIDE
  23. METRONIDAZOLE. [Concomitant]
     Active Substance: METRONIDAZOLE
  24. RANITIDINE. [Concomitant]
     Active Substance: RANITIDINE
  25. IOHEXOL [Concomitant]
     Active Substance: IOHEXOL
  26. PROPOFOL. [Concomitant]
     Active Substance: PROPOFOL
  27. PIPERACILLIN AND TAZOBACTAM [Concomitant]
     Active Substance: PIPERACILLIN SODIUM\TAZOBACTAM SODIUM
  28. TRIAMCINOLONE ACETONIDE. [Concomitant]
     Active Substance: TRIAMCINOLONE ACETONIDE
  29. NYSTATIN. [Concomitant]
     Active Substance: NYSTATIN
  30. AZATHIOPRINE. [Concomitant]
     Active Substance: AZATHIOPRINE
  31. AMOXICILLIN. [Concomitant]
     Active Substance: AMOXICILLIN
  32. PHENOL. [Concomitant]
     Active Substance: PHENOL
  33. MIDAZOLAM. [Concomitant]
     Active Substance: MIDAZOLAM
  34. ENOXAPARIN [Concomitant]
     Active Substance: ENOXAPARIN
  35. POLYMYXIN B SULFATE;TRIMETHOPRIM [Concomitant]
  36. RETINOL [Concomitant]
     Active Substance: RETINOL
  37. CHOLECALCIFEROL [Concomitant]
     Active Substance: CHOLECALCIFEROL
  38. LACTATED RINGERS SOLUTION [Concomitant]
     Active Substance: CALCIUM CHLORIDE\POTASSIUM CHLORIDE\SODIUM CHLORIDE\SODIUM LACTATE

REACTIONS (1)
  - Anal abscess [Recovered/Resolved]

NARRATIVE: CASE EVENT DATE: 2019
